FAERS Safety Report 7725949-3 (Version None)
Quarter: 2011Q3

REPORT INFORMATION
  Report Type: 
  Country: None (occurrence: None)
  Receive Date: 20110902
  Receipt Date: 20110824
  Transmission Date: 20111222
  Serious: Yes (Other)
  Sender: FDA-Public Use
  Company Number: GB-PFIZER INC-2011196254

PATIENT
  Age: 9 Week
  Sex: Male

DRUGS (15)
  1. ETOPOSIDE [Suspect]
     Indication: ACUTE MYELOID LEUKAEMIA
     Dosage: UNK
     Dates: start: 20110806
  2. MEROPENEM [Concomitant]
     Dosage: 100 MG, 3X/DAY
     Dates: start: 20110813
  3. GEMTUZUMAB OZOGAMICIN [Suspect]
     Indication: ACUTE MYELOID LEUKAEMIA
     Dosage: 3MG UNIT DOSE
     Dates: start: 20110806
  4. METHOCLOPRAMIDE [Concomitant]
     Dosage: 0.5 MG, 4X/DAY
     Dates: start: 20110805
  5. DAUNORUBICIN HCL [Suspect]
     Indication: MYELODYSPLASTIC SYNDROME
  6. ETOPOSIDE [Suspect]
     Indication: MYELODYSPLASTIC SYNDROME
  7. PARACETAMOL [Concomitant]
     Dosage: 80 MG, EVERY 4-6 HOURS AS NEEDED
     Dates: start: 20110728
  8. DAUNORUBICIN HCL [Suspect]
     Indication: ACUTE MYELOID LEUKAEMIA
     Dosage: UNK
     Dates: start: 20110806
  9. NYSTATIN [Concomitant]
     Dosage: 1 ML, 4X/DAY
     Dates: start: 20110811
  10. COTRIM [Concomitant]
     Dosage: 120 MG, 2X/DAY, MONDAY, WEDNESDAY, FRIDAY
     Dates: start: 20110810
  11. CYCLIZINE [Concomitant]
     Dosage: 5 MG, 3X/DAY
     Dates: start: 20110812
  12. CYTARABINE [Suspect]
     Indication: ACUTE MYELOID LEUKAEMIA
     Dosage: UNK
     Dates: start: 20110806
  13. CYTARABINE [Suspect]
     Indication: MYELODYSPLASTIC SYNDROME
  14. GEMTUZUMAB OZOGAMICIN [Suspect]
     Indication: MYELODYSPLASTIC SYNDROME
     Dosage: 0.54MG UNIT DOSE
     Dates: start: 20110808
  15. ONDANSETRON [Concomitant]
     Dosage: 2 MG, 3X/DAY
     Dates: start: 20110804

REACTIONS (1)
  - NEUTROPENIC COLITIS [None]
